FAERS Safety Report 24436970 (Version 2)
Quarter: 2024Q4

REPORT INFORMATION
  Report Type: Spontaneous
  Country: FR (occurrence: FR)
  Receive Date: 20241015
  Receipt Date: 20241015
  Transmission Date: 20250115
  Serious: Yes (Hospitalization)
  Sender: HILL DERMACEUTICALS, INC.
  Company Number: FR-Hill Dermaceuticals, Inc.-2163018

PATIENT
  Age: 73 Year
  Sex: Female
  Weight: 55.00 kg

DRUGS (1)
  1. TOLAK [Suspect]
     Active Substance: FLUOROURACIL
     Indication: Bowen^s disease
     Dates: start: 20240616, end: 20240707

REACTIONS (3)
  - Transient global amnesia [Recovered/Resolved]
  - Product use in unapproved indication [Unknown]
  - Off label use [Unknown]

NARRATIVE: CASE EVENT DATE: 20240616
